FAERS Safety Report 6359563-1 (Version None)
Quarter: 2009Q3

REPORT INFORMATION
  Report Type: 
  Country: None (occurrence: None)
  Receive Date: 20090917
  Receipt Date: 20090911
  Transmission Date: 20100115
  Serious: Yes (Hospitalization, Other)
  Sender: FDA-Public Use
  Company Number: US-ELI_LILLY_AND_COMPANY-US200909002754

PATIENT
  Sex: Male

DRUGS (8)
  1. HUMALOG MIX 75/25 [Suspect]
  2. PREDNISONE [Concomitant]
  3. IMURAN [Concomitant]
  4. ATENOLOL [Concomitant]
  5. CRESTOR [Concomitant]
  6. MIRAPEX [Concomitant]
  7. N-ACETYLCYSTEINE [Concomitant]
  8. COUMADIN [Concomitant]

REACTIONS (8)
  - COAGULATION TIME SHORTENED [None]
  - DEEP VEIN THROMBOSIS [None]
  - DYSPNOEA [None]
  - DYSPNOEA EXERTIONAL [None]
  - MEDICATION ERROR [None]
  - PNEUMONIA [None]
  - PULMONARY EMBOLISM [None]
  - PULMONARY FIBROSIS [None]
